FAERS Safety Report 10273960 (Version 1)
Quarter: 2014Q1

REPORT INFORMATION
  Report Type: Spontaneous
  Country: US (occurrence: None)
  Receive Date: 20140306
  Receipt Date: 20140306
  Transmission Date: 20141002
  Serious: Yes (Hospitalization)
  Sender: FDA-Public Use
  Company Number: 163-21880-13121031

PATIENT
  Age: 86 Year
  Sex: Female
  Weight: 54.4 kg

DRUGS (14)
  1. REVLIMID (LENALIDOMIDE) (5 MILLIGRAM, CAPSULES) [Suspect]
     Indication: PLASMA CELL MYELOMA
     Route: 048
     Dates: start: 201007
  2. HYOSCYAMINE (HYOSCYAMINE) [Concomitant]
  3. TRADJENTA (LINAGLIPTIN) (TABLETS) [Concomitant]
  4. POTASSIUM (POTASSIUM) (TABLETS) [Concomitant]
  5. ENTOCORT EC (BUDESONIDE) (CAPSULES) [Concomitant]
  6. MAGNESIUM (MAGNESIUM) (TABLETS) [Concomitant]
  7. LOMOTIL (LOMOTIL) (TABLETS) [Concomitant]
  8. METOPROLOL TARTRATE (METOPROLOL TARTRATE) (TABLETS) [Concomitant]
  9. DONEPEZIL HCL (DONEPEZIL HYDROCHLORIDE) (TABLETS) [Concomitant]
  10. NORTRIPTYLINE HCL (NORTRIPTYLINE HYDROCHLORIDE) (CAPSULES) [Concomitant]
  11. ASPIRIN (ACETYLSALICYLIC ACID) (CHEWABLE TABLET) [Concomitant]
  12. DIAZEPAM (DIAZEPAM) (TABLETS) [Concomitant]
  13. ZOFRAN (ONDANSETRON HYDROCHLORIDE) (TABLETS) [Concomitant]
  14. TRIAMTERENE-HCTZ (DYAZIDE) [Concomitant]

REACTIONS (4)
  - Fall [None]
  - Weight decreased [None]
  - Dizziness [None]
  - Decreased appetite [None]
